FAERS Safety Report 8461556-5 (Version None)
Quarter: 2012Q2

REPORT INFORMATION
  Report Type: 
  Country: None (occurrence: None)
  Receive Date: 20120618
  Receipt Date: 20120521
  Transmission Date: 20120825
  Serious: Yes (Other)
  Sender: FDA-Public Use
  Company Number: 2012P1041219

PATIENT
  Age: 82 Year
  Sex: Male

DRUGS (1)
  1. FAMOTIDINE [Suspect]
     Dosage: 20 MG;QD;PO
     Route: 048
     Dates: start: 20110304, end: 20120508

REACTIONS (2)
  - BREAST CANCER MALE [None]
  - GYNAECOMASTIA [None]
